FAERS Safety Report 25125792 (Version 1)
Quarter: 2025Q1

REPORT INFORMATION
  Report Type: Spontaneous
  Country: CZ (occurrence: CZ)
  Receive Date: 20250326
  Receipt Date: 20250326
  Transmission Date: 20250409
  Serious: Yes (Other)
  Sender: NOVARTIS
  Company Number: CZ-002147023-NVSC2025CZ041495

PATIENT
  Age: 42 Year
  Sex: Female

DRUGS (14)
  1. TAFINLAR [Suspect]
     Active Substance: DABRAFENIB MESYLATE
     Indication: Malignant melanoma
     Dosage: 75 MG, BID
     Route: 065
     Dates: start: 20220103, end: 20220114
  2. TAFINLAR [Suspect]
     Active Substance: DABRAFENIB MESYLATE
     Dosage: 75 MG, BID (2-0-2)
     Route: 065
     Dates: start: 202201, end: 2022
  3. TAFINLAR [Suspect]
     Active Substance: DABRAFENIB MESYLATE
     Route: 065
     Dates: start: 2022
  4. TAFINLAR [Suspect]
     Active Substance: DABRAFENIB MESYLATE
     Route: 065
  5. MEKINIST [Suspect]
     Active Substance: TRAMETINIB DIMETHYL SULFOXIDE
     Indication: Malignant melanoma
     Dosage: 2 MG, QD
     Route: 065
     Dates: start: 20220103, end: 20220114
  6. MEKINIST [Suspect]
     Active Substance: TRAMETINIB DIMETHYL SULFOXIDE
     Dosage: 2 MG, QD
     Route: 065
     Dates: start: 202201, end: 2022
  7. MEKINIST [Suspect]
     Active Substance: TRAMETINIB DIMETHYL SULFOXIDE
     Route: 065
     Dates: start: 2022
  8. MEKINIST [Suspect]
     Active Substance: TRAMETINIB DIMETHYL SULFOXIDE
     Route: 065
  9. Urosan [Concomitant]
     Indication: Product used for unknown indication
     Route: 065
  10. MAGNESIUM [Concomitant]
     Active Substance: MAGNESIUM
     Indication: Product used for unknown indication
     Route: 065
  11. METHIONINE [Concomitant]
     Active Substance: METHIONINE
     Indication: Product used for unknown indication
     Route: 065
  12. URSODIOL [Concomitant]
     Active Substance: URSODIOL
     Indication: Product used for unknown indication
     Route: 065
  13. METHYLPREDNISOLONE [Concomitant]
     Active Substance: METHYLPREDNISOLONE
     Indication: Product used for unknown indication
     Route: 030
     Dates: start: 2022, end: 2022
  14. METHYLPREDNISOLONE [Concomitant]
     Active Substance: METHYLPREDNISOLONE
     Indication: Product used for unknown indication
     Route: 030
     Dates: start: 2022, end: 2022

REACTIONS (10)
  - Erythema nodosum [Not Recovered/Not Resolved]
  - Nodule [Recovered/Resolved]
  - Pyrexia [Recovered/Resolved]
  - Body temperature increased [Recovered/Resolved]
  - Ulcer [Unknown]
  - Nodule [Recovering/Resolving]
  - Skin disorder [Not Recovered/Not Resolved]
  - Skin reaction [Unknown]
  - Pyrexia [Recovered/Resolved]
  - Adverse drug reaction [Unknown]

NARRATIVE: CASE EVENT DATE: 20220101
